FAERS Safety Report 6510168-9 (Version None)
Quarter: 2009Q4

REPORT INFORMATION
  Report Type: 
  Country: None (occurrence: None)
  Receive Date: 20091221
  Receipt Date: 20091221
  Transmission Date: 20100525
  Serious: Yes (Death, Hospitalization)
  Sender: FDA-Public Use
  Company Number: None

PATIENT
  Sex: Female
  Weight: 62.5 kg

DRUGS (2)
  1. XELODA [Suspect]
     Dosage: 70000 MG
  2. ELOXATIN [Suspect]
     Dosage: 430 MG

REACTIONS (14)
  - BACTERIAL INFECTION [None]
  - BLOOD CULTURE POSITIVE [None]
  - BLOOD PRESSURE ABNORMAL [None]
  - CANDIDIASIS [None]
  - CARDIAC ARREST [None]
  - DEHYDRATION [None]
  - DEVICE RELATED INFECTION [None]
  - DIARRHOEA [None]
  - FATIGUE [None]
  - HYPOKALAEMIA [None]
  - HYPOPHAGIA [None]
  - NEUTROPENIA [None]
  - STOMATITIS [None]
  - UNRESPONSIVE TO STIMULI [None]
